FAERS Safety Report 15463615 (Version 1)
Quarter: 2018Q4

REPORT INFORMATION
  Report Type: Spontaneous
  Country: US (occurrence: US)
  Receive Date: 20181001
  Receipt Date: 20181001
  Transmission Date: 20190204
  Serious: Yes (Life-Threatening)
  Sender: FDA-Public Use
  Company Number: None

PATIENT
  Age: 71 Year
  Sex: Male

DRUGS (1)
  1. DOFETILIDE. [Suspect]
     Active Substance: DOFETILIDE
     Dates: start: 20180820, end: 20180821

REACTIONS (2)
  - Electrocardiogram U-wave prominent [None]
  - Torsade de pointes [None]

NARRATIVE: CASE EVENT DATE: 20180820
